FAERS Safety Report 7726148-1 (Version None)
Quarter: 2011Q3

REPORT INFORMATION
  Report Type: 
  Country: None (occurrence: None)
  Receive Date: 20110831
  Receipt Date: 20110816
  Transmission Date: 20111222
  Serious: Yes (Death)
  Sender: FDA-Public Use
  Company Number: 2011MA012008

PATIENT
  Age: 76 Year
  Sex: Female

DRUGS (2)
  1. GEMCITABINE HYDROCHLORIDE [Suspect]
     Indication: BLADDER CANCER
  2. CISPLATIN [Suspect]
     Indication: BLADDER CANCER

REACTIONS (3)
  - INTERSTITIAL LUNG DISEASE [None]
  - BLADDER CANCER [None]
  - NEOPLASM PROGRESSION [None]
